FAERS Safety Report 5690203-0 (Version None)
Quarter: 2008Q2

REPORT INFORMATION
  Report Type: 
  Country: None (occurrence: None)
  Receive Date: 20080401
  Receipt Date: 20080328
  Transmission Date: 20081010
  Serious: Yes (Hospitalization)
  Sender: FDA-Public Use
  Company Number: ES-BRISTOL-MYERS SQUIBB COMPANY-14121784

PATIENT
  Age: 43 Year
  Sex: Female

DRUGS (5)
  1. TRAZODONE HCL [Suspect]
     Indication: HUNTINGTON'S CHOREA
     Route: 048
     Dates: start: 20070101
  2. ZYPREXA [Suspect]
     Indication: HUNTINGTON'S CHOREA
     Dosage: TABLET.
     Route: 048
     Dates: start: 20070101
  3. KEPPRA [Suspect]
     Indication: HUNTINGTON'S CHOREA
     Dosage: TABLET.
     Route: 048
     Dates: start: 20070101
  4. IDALPREM [Suspect]
     Indication: HUNTINGTON'S CHOREA
     Dosage: FORM-TABLET.
     Route: 048
     Dates: start: 20071201, end: 20080120
  5. SEROQUEL [Suspect]
     Indication: HUNTINGTON'S CHOREA
     Dosage: FORM- TABLET.
     Route: 048
     Dates: start: 20071201, end: 20080120

REACTIONS (1)
  - NEUROLEPTIC MALIGNANT SYNDROME [None]
